FAERS Safety Report 18270811 (Version 1)
Quarter: 2020Q3

REPORT INFORMATION
  Report Type: Other
  Country: US (occurrence: US)
  Receive Date: 20200916
  Receipt Date: 20200916
  Transmission Date: 20201103
  Serious: Yes (Other)
  Sender: FDA-Public Use
  Company Number: US-ROCHE-2676899

PATIENT
  Age: 59 Year
  Sex: Male

DRUGS (6)
  1. ACTILYSE [Suspect]
     Active Substance: ALTEPLASE
     Dosage: 35 MG OVER 60 MINUTES FREQUENCY
     Route: 042
  2. HEPARIN SODIUM. [Concomitant]
     Active Substance: HEPARIN SODIUM
     Indication: PRODUCT USED FOR UNKNOWN INDICATION
  3. ASPIRIN. [Concomitant]
     Active Substance: ASPIRIN
     Indication: PRODUCT USED FOR UNKNOWN INDICATION
  4. ACTILYSE [Suspect]
     Active Substance: ALTEPLASE
     Dosage: FOLLOWED BY 50 MG OVER 30 MINUTES  FREQUENCY
     Route: 042
  5. TICAGRELOR. [Concomitant]
     Active Substance: TICAGRELOR
     Indication: PRODUCT USED FOR UNKNOWN INDICATION
  6. ACTILYSE [Suspect]
     Active Substance: ALTEPLASE
     Indication: PRODUCT USED FOR UNKNOWN INDICATION
     Dosage: 15 MILLIGRAM WAS INFUSED OVER ONE MINUTE FREQUENCY
     Route: 042

REACTIONS (3)
  - Cardiogenic shock [Recovered/Resolved]
  - Thrombosis [Recovered/Resolved]
  - Distributive shock [Recovered/Resolved]
